FAERS Safety Report 4835674-4 (Version None)
Quarter: 2005Q4

REPORT INFORMATION
  Report Type: 
  Country: None (occurrence: None)
  Receive Date: 20051123
  Receipt Date: 20051014
  Transmission Date: 20060501
  Serious: No
  Sender: FDA-Public Use
  Company Number: US-BRISTOL-MYERS SQUIBB COMPANY-13144936

PATIENT
  Sex: Female
  Weight: 43 kg

DRUGS (1)
  1. KENALOG [Suspect]
     Indication: DERMATITIS
     Route: 061

REACTIONS (1)
  - DRUG INEFFECTIVE [None]
